FAERS Safety Report 16748144 (Version 1)
Quarter: 2019Q3

REPORT INFORMATION
  Report Type: Spontaneous
  Country: US (occurrence: US)
  Receive Date: 20190827
  Receipt Date: 20190827
  Transmission Date: 20191005
  Serious: Yes (Hospitalization, Other)
  Sender: FDA-Public Use
  Company Number: US-VIFOR (INTERNATIONAL) INC.-VIT-2019-08279

PATIENT
  Age: 70 Year
  Sex: Male

DRUGS (1)
  1. VELTASSA [Suspect]
     Active Substance: PATIROMER
     Indication: HYPERKALAEMIA
     Route: 048

REACTIONS (3)
  - Haemoglobin decreased [Unknown]
  - Diarrhoea [Not Recovered/Not Resolved]
  - Thrombosis [Unknown]

NARRATIVE: CASE EVENT DATE: 201810
